APPROVED DRUG PRODUCT: CLONIDINE
Active Ingredient: CLONIDINE
Strength: 0.1MG/24HR
Dosage Form/Route: SYSTEM;TRANSDERMAL
Application: A079090 | Product #001 | TE Code: AB
Applicant: DR REDDYS LABORATORIES SA
Approved: Aug 20, 2010 | RLD: No | RS: No | Type: RX